FAERS Safety Report 14968757 (Version 1)
Quarter: 2018Q2

REPORT INFORMATION
  Report Type: Spontaneous
  Country: US (occurrence: US)
  Receive Date: 20180511
  Receipt Date: 20180511
  Transmission Date: 20180711
  Serious: Yes (Life-Threatening, Disabling, Other)
  Sender: FDA-Public Use
  Company Number: None

PATIENT
  Age: 64 Year
  Sex: Female
  Weight: 45.9 kg

DRUGS (1)
  1. CIPROFLOXACIN. [Suspect]
     Active Substance: CIPROFLOXACIN
     Indication: URINARY TRACT INFECTION
     Dosage: ?          QUANTITY:14 TABLET(S);?
     Route: 048
     Dates: start: 20180504, end: 20180506

REACTIONS (11)
  - Angina pectoris [None]
  - Hypoaesthesia [None]
  - Lacrimation increased [None]
  - Chest pain [None]
  - Diarrhoea [None]
  - Pain [None]
  - Dyspnoea [None]
  - Bedridden [None]
  - Balance disorder [None]
  - Abdominal pain [None]
  - Disorientation [None]

NARRATIVE: CASE EVENT DATE: 20180504
